FAERS Safety Report 7603453-0 (Version None)
Quarter: 2011Q3

REPORT INFORMATION
  Report Type: 
  Country: None (occurrence: None)
  Receive Date: 20110712
  Receipt Date: 20110707
  Transmission Date: 20111222
  Serious: Yes (Other)
  Sender: FDA-Public Use
  Company Number: US-PFIZER INC-2011153804

PATIENT
  Sex: Female
  Weight: 78.912 kg

DRUGS (5)
  1. EFFEXOR XR [Suspect]
     Indication: ANXIETY
     Dosage: 50 MG, 1X/DAY
     Route: 048
     Dates: start: 19980101
  2. VENLAFAXINE HCL [Suspect]
     Indication: ANXIETY
     Dosage: 50 MG, 2X/DAY
     Route: 048
  3. EFFEXOR XR [Suspect]
     Indication: DEPRESSION
  4. VENLAFAXINE HCL [Suspect]
     Indication: DEPRESSION
  5. PROVIGIL [Concomitant]
     Indication: NARCOLEPSY
     Dosage: UNK

REACTIONS (3)
  - BACK INJURY [None]
  - MUSCULOSKELETAL DISCOMFORT [None]
  - MOOD ALTERED [None]
